FAERS Safety Report 25357125 (Version 1)
Quarter: 2025Q2

REPORT INFORMATION
  Report Type: Spontaneous
  Country: AU (occurrence: AU)
  Receive Date: 20250526
  Receipt Date: 20250526
  Transmission Date: 20250717
  Serious: Yes (Death, Hospitalization, Other)
  Sender: CIPLA
  Company Number: Z97AU10005

PATIENT

DRUGS (8)
  1. LENALIDOMIDE [Suspect]
     Active Substance: LENALIDOMIDE
     Indication: Plasma cell myeloma
     Dosage: UNK
     Route: 048
     Dates: start: 20241018, end: 20241027
  2. BORTEZOMIB [Suspect]
     Active Substance: BORTEZOMIB
     Indication: Plasma cell myeloma
     Route: 058
     Dates: start: 20241018, end: 20241025
  3. DARATUMUMAB [Suspect]
     Active Substance: DARATUMUMAB
     Indication: Plasma cell myeloma
     Dosage: 1800 MILLIGRAM, QD
     Route: 058
     Dates: start: 20241018, end: 20241025
  4. DEXAMETHASONE [Suspect]
     Active Substance: DEXAMETHASONE
     Indication: Plasma cell myeloma
     Dosage: 20 MILLIGRAM, QD
     Route: 048
     Dates: start: 20241018, end: 20241026
  5. OXYCODONE [Concomitant]
     Active Substance: OXYCODONE
     Indication: Diverticular perforation
     Route: 065
  6. ACETAMINOPHEN [Concomitant]
     Active Substance: ACETAMINOPHEN
     Indication: Diverticulum
     Dosage: UNK, QID (EVERY 6 HOURS)
     Route: 065
  7. ACETAMINOPHEN [Concomitant]
     Active Substance: ACETAMINOPHEN
     Indication: Musculoskeletal chest pain
     Dosage: UNK, TID, THREE TIMES DAILY
     Route: 065
  8. ACETAMINOPHEN [Concomitant]
     Active Substance: ACETAMINOPHEN
     Indication: Pain

REACTIONS (1)
  - Diverticular perforation [Fatal]

NARRATIVE: CASE EVENT DATE: 20241028
